FAERS Safety Report 18758878 (Version 1)
Quarter: 2021Q1

REPORT INFORMATION
  Report Type: Spontaneous
  Country: US (occurrence: US)
  Receive Date: 20210119
  Receipt Date: 20210119
  Transmission Date: 20210419
  Serious: Yes (Hospitalization)
  Sender: FDA-Public Use
  Company Number: US-TEVA-2021-US-1869931

PATIENT
  Age: 78 Year
  Sex: Male

DRUGS (4)
  1. NIVOLUMAB [Interacting]
     Active Substance: NIVOLUMAB
     Indication: COLON CANCER METASTATIC
     Route: 065
  2. PREDNISONE. [Suspect]
     Active Substance: PREDNISONE
     Indication: IMMUNE-MEDIATED ENTEROCOLITIS
     Dosage: 1 MG/KG DAILY;
     Route: 048
  3. METHYLPREDNISOLONE. [Suspect]
     Active Substance: METHYLPREDNISOLONE
     Indication: IMMUNE-MEDIATED ENTEROCOLITIS
     Dosage: 2 MG/KG DAILY;
     Route: 042
  4. IPILIMUMAB [Interacting]
     Active Substance: IPILIMUMAB
     Indication: COLON CANCER METASTATIC
     Route: 065

REACTIONS (3)
  - Treatment failure [Unknown]
  - Drug interaction [Recovered/Resolved]
  - Immune-mediated enterocolitis [Recovered/Resolved]
